FAERS Safety Report 8028836-9 (Version None)
Quarter: 2012Q1

REPORT INFORMATION
  Report Type: 
  Country: None (occurrence: None)
  Receive Date: 20120106
  Receipt Date: 20111222
  Transmission Date: 20120608
  Serious: Yes (Death, Hospitalization)
  Sender: FDA-Public Use
  Company Number: IT-CELGENEUS-083-21880-11113563

PATIENT
  Sex: Female

DRUGS (2)
  1. DEXAMETHASONE [Concomitant]
     Indication: LYMPHOMA
     Route: 065
  2. REVLIMID [Suspect]
     Indication: LYMPHOMA
     Dosage: 25 MILLIGRAM
     Route: 048
     Dates: start: 20081006, end: 20081022

REACTIONS (4)
  - LYMPHOMA [None]
  - ENTERITIS [None]
  - CANDIDA PNEUMONIA [None]
  - SOFT TISSUE INFECTION [None]
